FAERS Safety Report 4627117-0 (Version None)
Quarter: 2005Q2

REPORT INFORMATION
  Report Type: 
  Country: None (occurrence: None)
  Receive Date: 20050405
  Receipt Date: 20030505
  Transmission Date: 20051028
  Serious: Yes (Hospitalization)
  Sender: FDA-Public Use
  Company Number: PL-ROCHE-337451

PATIENT
  Age: 59 Year
  Sex: Male
  Weight: 62.4 kg

DRUGS (16)
  1. DACLIZUMAB [Suspect]
     Route: 042
     Dates: start: 20021018, end: 20021018
  2. DACLIZUMAB [Suspect]
     Route: 042
     Dates: start: 20021031, end: 20021213
  3. MYCOPHENOLATE MOFETIL [Suspect]
     Route: 048
     Dates: start: 20021019
  4. CYCLOSPORINE [Concomitant]
     Route: 048
     Dates: start: 20021017
  5. PREDNISONE TAB [Concomitant]
     Dates: start: 20021020
  6. ISOSORBIDE MONONITRATE [Concomitant]
     Dates: start: 20021115
  7. NITRENDIPINE [Concomitant]
     Dates: start: 20021018
  8. PRAZOSINE [Concomitant]
     Dates: start: 20021018
  9. DIHYDRALAZINE [Concomitant]
     Dates: start: 20021028
  10. CARVEDILOL [Concomitant]
     Dates: start: 20030618
  11. CLONIDINUM [Concomitant]
     Dates: start: 20030617
  12. ENALAPRIL [Concomitant]
     Dates: start: 20030909
  13. RILMENIDINE [Concomitant]
     Dates: start: 20030909
  14. SIMVASTATIN [Concomitant]
     Dates: start: 20030218
  15. RANITIDINE [Concomitant]
     Dates: start: 20030909
  16. DOXAZOSIN MESYLATE [Concomitant]
     Dates: start: 20030909

REACTIONS (5)
  - HELICOBACTER PYLORI IDENTIFICATION TEST POSITIVE [None]
  - HERPES ZOSTER [None]
  - HYPERTENSION [None]
  - PARATHYROID TUMOUR BENIGN [None]
  - PEPTIC ULCER [None]
